FAERS Safety Report 8559506-6 (Version None)
Quarter: 2012Q3

REPORT INFORMATION
  Report Type: 
  Country: None (occurrence: None)
  Receive Date: 20120802
  Receipt Date: 20120724
  Transmission Date: 20120928
  Serious: Yes (Other)
  Sender: FDA-Public Use
  Company Number: BR-JNJFOC-20120713175

PATIENT
  Age: 63 Year
  Sex: Female

DRUGS (5)
  1. ACETAMINOPHEN W/ CODEINE [Suspect]
     Indication: BACK PAIN
     Dosage: 1 TABLET
     Route: 048
     Dates: start: 20070101
  2. PHENERGAN [Suspect]
     Indication: SLEEP DISORDER THERAPY
     Dosage: AT NIGHT
     Route: 065
     Dates: start: 20070101
  3. FLUOXETINE HCL [Suspect]
     Indication: DEPRESSION
     Dosage: IN THE MORNING
     Route: 065
     Dates: start: 20070101
  4. NEOZINE [Suspect]
     Indication: SLEEP DISORDER THERAPY
     Dosage: AT NIGHT
     Route: 065
     Dates: start: 20070101
  5. RIVOTRIL [Suspect]
     Indication: SLEEP DISORDER THERAPY
     Dosage: AT NIGHT
     Route: 065
     Dates: start: 20070101

REACTIONS (1)
  - WEIGHT INCREASED [None]
